FAERS Safety Report 7048859-6 (Version None)
Quarter: 2010Q4

REPORT INFORMATION
  Report Type: 
  Country: None (occurrence: None)
  Receive Date: 20101013
  Receipt Date: 20100925
  Transmission Date: 20110411
  Serious: Yes (Hospitalization)
  Sender: FDA-Public Use
  Company Number: CRC-10-162

PATIENT
  Age: 78 Year
  Sex: Female

DRUGS (3)
  1. METOPROLOL TARTRATE [Suspect]
  2. SIMVASTATIN [Suspect]
     Dosage: 20MG, ORAL
     Route: 048
  3. ATENOLOL [Suspect]
     Dosage: 100MG, ORAL
     Route: 048

REACTIONS (3)
  - BLOOD PRESSURE INADEQUATELY CONTROLLED [None]
  - DRUG INEFFECTIVE [None]
  - HYPERTENSION [None]
